FAERS Safety Report 15672212 (Version 1)
Quarter: 2018Q4

REPORT INFORMATION
  Report Type: Report from Study
  Country: US (occurrence: US)
  Receive Date: 20181129
  Receipt Date: 20181129
  Transmission Date: 20190205
  Serious: Yes (Other)
  Sender: FDA-Public Use
  Company Number: US-TESARO, INC-US-2018TSO02161

PATIENT
  Age: 80 Year
  Sex: Female

DRUGS (2)
  1. ZEJULA [Suspect]
     Active Substance: NIRAPARIB
     Indication: METASTASES TO RETROPERITONEUM
     Dosage: 300 MG, QD
     Route: 048
     Dates: start: 20180418, end: 20180503
  2. ZEJULA [Suspect]
     Active Substance: NIRAPARIB
     Indication: RETROPERITONEAL CANCER
     Dosage: 100 MG, QD
     Route: 048
     Dates: start: 20180613

REACTIONS (11)
  - Balance disorder [Unknown]
  - Blood count abnormal [Unknown]
  - Stomatitis [Unknown]
  - Platelet count decreased [Unknown]
  - Constipation [Unknown]
  - Dry mouth [Unknown]
  - Dyspnoea [Unknown]
  - Unevaluable event [Unknown]
  - Product use in unapproved indication [Unknown]
  - Tongue discolouration [Unknown]
  - Urine analysis abnormal [Unknown]

NARRATIVE: CASE EVENT DATE: 20180428
